FAERS Safety Report 21925564 (Version 1)
Quarter: 2023Q1

REPORT INFORMATION
  Report Type: Spontaneous
  Country: US (occurrence: US)
  Receive Date: 20230130
  Receipt Date: 20230130
  Transmission Date: 20230418
  Serious: Yes (Hospitalization, Other)
  Sender: FDA-Public Use
  Company Number: US-GLAXOSMITHKLINE-US2023009483

PATIENT

DRUGS (11)
  1. ANORO ELLIPTA [Suspect]
     Active Substance: UMECLIDINIUM BROMIDE\VILANTEROL TRIFENATATE
     Indication: Chronic obstructive pulmonary disease
     Dosage: UNK, Z (1 X DAILY / 62.5 MCG-25MCG)
     Dates: start: 2018
  2. ATORVASTATIN [Concomitant]
     Active Substance: ATORVASTATIN
     Indication: Blood cholesterol abnormal
     Dosage: 80 MG, QD (80 MG / 1 X DAILY)
     Dates: start: 2018
  3. CLOPIDOGREL [Concomitant]
     Active Substance: CLOPIDOGREL BISULFATE
     Indication: Anticoagulant therapy
     Dosage: 75 MG, QD (75 MG / 1 X DAILY)
     Dates: start: 2018
  4. ROPINIROLE [Concomitant]
     Active Substance: ROPINIROLE
     Indication: Muscle spasms
     Dosage: 0.4 MG, QD (0.4MG / 1 X DAILY
     Dates: start: 202210
  5. FUROSEMIDE [Concomitant]
     Active Substance: FUROSEMIDE
     Indication: Fluid retention
     Dosage: 40 MG, QD (40MG / 1 X DAILY)
     Dates: start: 2018
  6. METOPROLOL [Concomitant]
     Active Substance: METOPROLOL
     Indication: Blood pressure measurement
     Dosage: 25 MG, QD (25MG 1 X DAILY (1/2 AM AND 1/2 PM)
     Dates: start: 2018
  7. XANAX [Concomitant]
     Active Substance: ALPRAZOLAM
     Indication: Depression
     Dosage: UNK, Z (AS NEEDED)
     Dates: start: 2020
  8. VENLAFAXINE [Concomitant]
     Active Substance: VENLAFAXINE HYDROCHLORIDE
     Indication: Depression
     Dosage: 75 MG, QD (75MG / 1 X DAILY)
     Dates: start: 202211
  9. PROMETHAZINE [Concomitant]
     Active Substance: PROMETHAZINE HYDROCHLORIDE
     Indication: Abdominal discomfort
     Dosage: UNK, Z (AS NEEDED)
  10. NITROGLYCERIN [Concomitant]
     Active Substance: NITROGLYCERIN
     Indication: Angina pectoris
     Dosage: UNK, Z (AS NEEDED)
     Dates: start: 2018
  11. PANTOPRAZOLE [Concomitant]
     Active Substance: PANTOPRAZOLE
     Indication: Abdominal pain upper
     Dosage: 40 MG, QD (40 MG BEDTIME / 1 X DAILY
     Dates: start: 202211

REACTIONS (3)
  - Thrombosis [Recovering/Resolving]
  - Haemoptysis [Unknown]
  - COVID-19 [Unknown]

NARRATIVE: CASE EVENT DATE: 20220101
